FAERS Safety Report 4280023-6 (Version None)
Quarter: 2004Q1

REPORT INFORMATION
  Report Type: 
  Country: None (occurrence: None)
  Receive Date: 20040128
  Receipt Date: 20040116
  Transmission Date: 20041129
  Serious: Yes (Hospitalization)
  Sender: FDA-Public Use
  Company Number: PHBS2004DE00980

PATIENT
  Sex: Male
  Weight: 2 kg

DRUGS (1)
  1. VALSARTAN [Suspect]
     Route: 064

REACTIONS (8)
  - AMNIOCENTESIS ABNORMAL [None]
  - BREECH PRESENTATION [None]
  - CAESAREAN SECTION [None]
  - DIALYSIS [None]
  - DRUG EXPOSURE DURING PREGNANCY [None]
  - INTUBATION [None]
  - NEONATAL ANURIA [None]
  - PREMATURE BABY [None]
